FAERS Safety Report 5182683-4 (Version None)
Quarter: 2006Q4

REPORT INFORMATION
  Report Type: 
  Country: None (occurrence: None)
  Receive Date: 20061220
  Receipt Date: 20061204
  Transmission Date: 20070319
  Serious: Yes (Hospitalization, Other)
  Sender: FDA-Public Use
  Company Number: FR-AVENTIS-200614267FR

PATIENT
  Age: 37 Year
  Sex: Female
  Weight: 70 kg

DRUGS (4)
  1. KETEK [Suspect]
     Indication: SINUSITIS
     Route: 048
     Dates: start: 20061011, end: 20061015
  2. CELESTENE                          /00008501/ [Suspect]
     Indication: SINUSITIS
     Route: 048
     Dates: start: 20061011, end: 20061015
  3. AERIUS                             /01398501/ [Suspect]
     Indication: SINUSITIS
     Route: 048
     Dates: start: 20061011, end: 20061015
  4. ACETAMINOPHEN [Concomitant]
     Indication: SINUSITIS

REACTIONS (10)
  - AGEUSIA [None]
  - ANOSMIA [None]
  - APPETITE DISORDER [None]
  - ASTHENIA [None]
  - DYSAESTHESIA [None]
  - ERYTHEMA [None]
  - MALAISE [None]
  - OEDEMA [None]
  - THIRST [None]
  - THIRST DECREASED [None]
